FAERS Safety Report 8106128-7 (Version None)
Quarter: 2012Q1

REPORT INFORMATION
  Report Type: 
  Country: None (occurrence: None)
  Receive Date: 20120202
  Receipt Date: 20120130
  Transmission Date: 20120608
  Serious: No
  Sender: FDA-Public Use
  Company Number: US-PFIZER INC-2011131938

PATIENT
  Sex: Male
  Weight: 63.5 kg

DRUGS (5)
  1. IBUPROFEN (ADVIL) [Suspect]
     Dosage: 200 MG, UNK
     Route: 065
     Dates: start: 20110614, end: 20110615
  2. ISOSORBIDE [Concomitant]
     Dosage: UNK
  3. ISOSORBIDE [Concomitant]
     Indication: BLOOD DISORDER
     Dosage: UNK
     Dates: start: 19990101
  4. IBUPROFEN (ADVIL) [Suspect]
     Indication: PAIN
     Dosage: UNK, AS NEEDED
     Route: 048
     Dates: start: 20111001, end: 20120129
  5. ACETYLSALICYLIC ACID [Concomitant]
     Dosage: UNK

REACTIONS (3)
  - MOVEMENT DISORDER [None]
  - EYE MOVEMENT DISORDER [None]
  - INSOMNIA [None]
